FAERS Safety Report 6430239-5 (Version None)
Quarter: 2009Q4

REPORT INFORMATION
  Report Type: 
  Country: None (occurrence: None)
  Receive Date: 20091104
  Receipt Date: 20091023
  Transmission Date: 20100525
  Serious: Yes (Hospitalization, Other)
  Sender: FDA-Public Use
  Company Number: 2009AC000090

PATIENT
  Age: 59 Year
  Sex: Female

DRUGS (56)
  1. DIGOXIN [Suspect]
     Dosage: 0.125 MG;QD;PO
     Route: 048
     Dates: start: 19970101, end: 20090618
  2. GLIPIZIDE [Concomitant]
  3. METFORMIN HCL [Concomitant]
  4. ZYRTEC [Concomitant]
  5. CIPROFLOXACIN [Concomitant]
  6. ZOCOR [Concomitant]
  7. PLAVIX [Concomitant]
  8. HUMALOG [Concomitant]
  9. LANTUS [Concomitant]
  10. DETROL [Concomitant]
  11. LISINOPRIL [Concomitant]
  12. FUROSEMIDE [Concomitant]
  13. AVAPRO [Concomitant]
  14. NOVALOG [Concomitant]
  15. ISOSORBIDE [Concomitant]
  16. CLOPIDOGREL [Concomitant]
  17. DICYCLOMINE [Concomitant]
  18. OMERPRAZOLE [Concomitant]
  19. IMDUR [Concomitant]
  20. KLONOPIN [Concomitant]
  21. BELLA [Concomitant]
  22. CEFTIN [Concomitant]
  23. CODEINE [Concomitant]
  24. ORPHENADRINE CITRATE [Concomitant]
  25. PHENTERMINE [Concomitant]
  26. PROPO-N-APA [Concomitant]
  27. ALPRAZOLAM [Concomitant]
  28. OXYBUTYNIN CHLORIDE [Concomitant]
  29. RELION PEN [Concomitant]
  30. PERCOCET [Concomitant]
  31. CLONAZEPAM [Concomitant]
  32. NEXIUM [Concomitant]
  33. TYLENOL (CAPLET) [Concomitant]
  34. BENADRYL [Concomitant]
  35. NEURONTIN [Concomitant]
  36. HYDROMORPHONE [Concomitant]
  37. METOPROLOL [Concomitant]
  38. AMBIENT [Concomitant]
  39. PLAVIX [Concomitant]
  40. GABAPENTIN [Concomitant]
  41. DIOVAN [Concomitant]
  42. XALATAN [Concomitant]
  43. LIDODERM [Concomitant]
  44. LEVAQUIN [Concomitant]
  45. PANTOPRAZOLE [Concomitant]
  46. ZOLPIDEM [Concomitant]
  47. PROTONIX [Concomitant]
  48. SIMVASTATIN [Concomitant]
  49. TOPROL-XL [Concomitant]
  50. ZYRTEC [Concomitant]
  51. GLUCOPHAGE [Concomitant]
  52. GLUCOTROL [Concomitant]
  53. PRINIVIL [Concomitant]
  54. CELEBREX [Concomitant]
  55. INSULIN [Concomitant]
  56. ROXICET [Concomitant]

REACTIONS (44)
  - ABDOMINAL HERNIA [None]
  - ANAEMIA [None]
  - ANGINA UNSTABLE [None]
  - ANXIETY [None]
  - ARTHRALGIA [None]
  - ASPIRATION JOINT [None]
  - BENIGN NEOPLASM OF SKIN [None]
  - BLOOD GLUCOSE INCREASED [None]
  - BLOOD POTASSIUM INCREASED [None]
  - CARDIAC FAILURE CONGESTIVE [None]
  - CHEST PAIN [None]
  - DEPRESSION [None]
  - DIASTOLIC DYSFUNCTION [None]
  - DYSSTASIA [None]
  - ECONOMIC PROBLEM [None]
  - FALL [None]
  - FEAR [None]
  - HEADACHE [None]
  - HYPOTENSION [None]
  - INTERVERTEBRAL DISC DEGENERATION [None]
  - INTERVERTEBRAL DISC PROTRUSION [None]
  - INTESTINAL DILATATION [None]
  - INTESTINAL FUNCTIONAL DISORDER [None]
  - JOINT INJURY [None]
  - LEFT VENTRICULAR HYPERTROPHY [None]
  - LIMB INJURY [None]
  - LUNG INFILTRATION [None]
  - MULTIPLE INJURIES [None]
  - MUSCULAR WEAKNESS [None]
  - NAIL DISORDER [None]
  - NARCOLEPSY [None]
  - NERVOUSNESS [None]
  - PAIN [None]
  - PAIN IN EXTREMITY [None]
  - PARAESTHESIA [None]
  - PERICARDIAL EFFUSION [None]
  - PERIPHERAL VASCULAR DISORDER [None]
  - PLEURAL EFFUSION [None]
  - RENAL FAILURE [None]
  - RESPIRATORY DISTRESS [None]
  - ROTATOR CUFF SYNDROME [None]
  - SMALL INTESTINAL OBSTRUCTION [None]
  - TENDONITIS [None]
  - THERAPEUTIC AGENT TOXICITY [None]
